FAERS Safety Report 6475657-4 (Version None)
Quarter: 2009Q4

REPORT INFORMATION
  Report Type: 
  Country: None (occurrence: None)
  Receive Date: 20091204
  Receipt Date: 20090102
  Transmission Date: 20100525
  Serious: No
  Sender: FDA-Public Use
  Company Number: US-AMGEN-KDL326728

PATIENT
  Sex: Female

DRUGS (1)
  1. ENBREL [Suspect]
     Indication: PSORIASIS
     Route: 058
     Dates: start: 20080101

REACTIONS (6)
  - COUGH [None]
  - INJECTION SITE PAIN [None]
  - JOINT SWELLING [None]
  - LYMPHADENOPATHY [None]
  - PSORIASIS [None]
  - SINUSITIS [None]
